FAERS Safety Report 4561797-3 (Version None)
Quarter: 2005Q1

REPORT INFORMATION
  Report Type: 
  Country: None (occurrence: None)
  Receive Date: 20050125
  Receipt Date: 20050112
  Transmission Date: 20050727
  Serious: Yes (Hospitalization, Other)
  Sender: FDA-Public Use
  Company Number: 2005010980

PATIENT
  Age: 75 Year
  Sex: Female
  Weight: 78.9259 kg

DRUGS (4)
  1. CELEBREX [Suspect]
     Indication: ARTHRITIS
     Dosage: ORAL
     Route: 048
     Dates: start: 20040101, end: 20040101
  2. VALSARTAN (VALSARTAN) [Concomitant]
  3. METOPROLOL TARTRATE [Concomitant]
  4. OMEPRAZOLE [Concomitant]

REACTIONS (4)
  - ARTHRALGIA [None]
  - ASTHENIA [None]
  - DIFFICULTY IN WALKING [None]
  - GASTRIC HAEMORRHAGE [None]
